FAERS Safety Report 7474050-5 (Version None)
Quarter: 2011Q2

REPORT INFORMATION
  Report Type: 
  Country: None (occurrence: None)
  Receive Date: 20110511
  Receipt Date: 20110213
  Transmission Date: 20111010
  Serious: Yes (Hospitalization, Other)
  Sender: FDA-Public Use
  Company Number: PHHY2010CA49270

PATIENT
  Sex: Male

DRUGS (6)
  1. AVODART [Concomitant]
     Dosage: 5 MG, UNK
  2. ZOLEDRONIC ACID [Suspect]
     Indication: OSTEOPOROSIS
     Dosage: 5 MG / 100 ML
     Dates: start: 20100709
  3. SYNTHROID [Concomitant]
     Dosage: 50 MG, UNK
  4. MIACALCIN [Concomitant]
  5. CALCIUM [Concomitant]
     Dosage: UNK
  6. VITAMIN D [Concomitant]
     Dosage: 10000 U, UNK

REACTIONS (8)
  - MYALGIA [None]
  - CHILLS [None]
  - NAUSEA [None]
  - DECREASED APPETITE [None]
  - CERVICAL ROOT PAIN [None]
  - VOMITING [None]
  - INFLUENZA LIKE ILLNESS [None]
  - MUSCULOSKELETAL STIFFNESS [None]
